FAERS Safety Report 15621488 (Version 3)
Quarter: 2019Q1

REPORT INFORMATION
  Report Type: Report from Study
  Country: CA (occurrence: CA)
  Receive Date: 20181115
  Receipt Date: 20190212
  Transmission Date: 20190417
  Serious: Yes (Hospitalization, Other)
  Sender: FDA-Public Use
  Company Number: CA-GLAXOSMITHKLINE-CA2018GSK206968

PATIENT
  Sex: Male

DRUGS (12)
  1. SYMBICORT [Suspect]
     Active Substance: BUDESONIDE\FORMOTEROL FUMARATE DIHYDRATE
     Indication: PRODUCT USED FOR UNKNOWN INDICATION
     Dosage: UNK
  2. CYMBALTA [Concomitant]
     Active Substance: DULOXETINE HYDROCHLORIDE
     Indication: BACK PAIN
     Dosage: 20 MG, UNK
  3. RESTORALAX [Concomitant]
     Active Substance: POLYETHYLENE GLYCOL 3350
     Indication: PRODUCT USED FOR UNKNOWN INDICATION
     Dosage: UNK
  4. PULMICORT TURBUHALER [Suspect]
     Active Substance: BUDESONIDE
     Indication: PRODUCT USED FOR UNKNOWN INDICATION
     Dosage: UNK
     Route: 055
  5. VITAMIN D [Concomitant]
     Active Substance: CHOLECALCIFEROL
     Indication: PRODUCT USED FOR UNKNOWN INDICATION
     Dosage: UNK
  6. PREDNISONE. [Concomitant]
     Active Substance: PREDNISONE
     Indication: EOSINOPHILIA
  7. PANTOPRAZOLE [Concomitant]
     Active Substance: PANTOPRAZOLE
     Indication: PRODUCT USED FOR UNKNOWN INDICATION
     Dosage: UNK (40)
  8. SALBUTAMOL SULPHATE [Suspect]
     Active Substance: ALBUTEROL SULFATE
     Indication: PRODUCT USED FOR UNKNOWN INDICATION
     Dosage: 100 UG, PRN
     Route: 055
  9. PREDNISONE. [Concomitant]
     Active Substance: PREDNISONE
     Indication: ASTHMA
     Dosage: 40 MG, UNK
  10. CETIRIZINE [Concomitant]
     Active Substance: CETIRIZINE HYDROCHLORIDE
     Indication: PRODUCT USED FOR UNKNOWN INDICATION
     Dosage: 10 MG, UNK
  11. ONDANSETRON [Concomitant]
     Active Substance: ONDANSETRON
     Indication: PRODUCT USED FOR UNKNOWN INDICATION
     Dosage: UNK UNK, PRN
  12. PREDNISONE. [Concomitant]
     Active Substance: PREDNISONE
     Indication: PERIVASCULAR DERMATITIS
     Dosage: 15 MG, 1D

REACTIONS (32)
  - Haematuria [Unknown]
  - Nasal septum perforation [Unknown]
  - Eosinophilia [Unknown]
  - Sinusitis [Recovering/Resolving]
  - Blood urine [Unknown]
  - Urticaria [Unknown]
  - Constipation [Unknown]
  - Sneezing [Unknown]
  - Nasal crusting [Recovering/Resolving]
  - Gastroenteritis eosinophilic [Unknown]
  - Fatigue [Unknown]
  - Insomnia [Unknown]
  - Intervertebral disc disorder [Unknown]
  - Hypersensitivity vasculitis [Unknown]
  - Gastritis [Unknown]
  - Nasal congestion [Recovering/Resolving]
  - Perivascular dermatitis [Unknown]
  - Anosmia [Unknown]
  - Abdominal pain [Unknown]
  - Purpura [Unknown]
  - Asthenia [Unknown]
  - Muscular weakness [Unknown]
  - Asthma [Not Recovered/Not Resolved]
  - Condition aggravated [Unknown]
  - Hospitalisation [Unknown]
  - Nasal polyps [Recovering/Resolving]
  - Vomiting [Unknown]
  - Pharyngitis [Unknown]
  - Blood count abnormal [Unknown]
  - Abdominal discomfort [Not Recovered/Not Resolved]
  - Sinus pain [Unknown]
  - Eosinophilic granulomatosis with polyangiitis [Unknown]

NARRATIVE: CASE EVENT DATE: 2012
